FAERS Safety Report 6227565-1 (Version None)
Quarter: 2009Q2

REPORT INFORMATION
  Report Type: 
  Country: None (occurrence: None)
  Receive Date: 20090612
  Receipt Date: 20090608
  Transmission Date: 20091009
  Serious: Yes (Other)
  Sender: FDA-Public Use
  Company Number: FR-ASTRAZENECA-2009CG01172

PATIENT
  Age: 177 Month
  Sex: Female

DRUGS (13)
  1. FOSCAVIR [Suspect]
     Route: 042
     Dates: start: 20090217, end: 20090507
  2. MOPRAL [Concomitant]
  3. VFEND [Concomitant]
     Dates: end: 20090504
  4. ORACILLINE [Concomitant]
  5. SOLUPRED [Concomitant]
  6. CELLCEPT [Concomitant]
  7. UN-ALFA [Concomitant]
  8. BACTRIM [Concomitant]
  9. DELURSAN [Concomitant]
  10. NICARDIPINE HCL [Concomitant]
  11. DESFERAL [Concomitant]
  12. MORPHINE [Concomitant]
  13. FORTUM [Concomitant]

REACTIONS (1)
  - OESOPHAGITIS [None]
